FAERS Safety Report 8200233-2 (Version None)
Quarter: 2012Q1

REPORT INFORMATION
  Report Type: 
  Country: None (occurrence: None)
  Receive Date: 20120312
  Receipt Date: 20120309
  Transmission Date: 20120608
  Serious: Yes (Other)
  Sender: FDA-Public Use
  Company Number: US-PFIZER INC-2012063620

PATIENT
  Sex: Female
  Weight: 97.506 kg

DRUGS (15)
  1. CHANTIX [Suspect]
     Indication: SMOKING CESSATION THERAPY
     Dosage: 0.5 MG, 1X/DAY
     Route: 048
     Dates: start: 20111114, end: 20110101
  2. SAVELLA [Concomitant]
     Dosage: 50 MG, 1X/DAY
  3. VITAMIN B-12 [Concomitant]
     Dosage: 1000 UG, 1X/DAY
  4. LEVOXYL [Concomitant]
     Dosage: 100 UG, 1X/DAY
  5. FISH OIL [Concomitant]
     Dosage: 1000 MG, 2X/DAY
  6. PREDNISONE [Concomitant]
     Dosage: 100 MG, 1X/DAY
  7. ZETIA [Concomitant]
     Dosage: 10 MG, 1X/DAY
  8. PREMARIN [Concomitant]
     Dosage: 0.625 MG, 1X/DAY
  9. VICODIN [Concomitant]
     Dosage: UNK, AS NEEDED
  10. ASCORBIC ACID [Concomitant]
     Dosage: 500 MG, 1X/DAY
  11. FENOFIBRATE [Concomitant]
     Indication: BLOOD CHOLESTEROL INCREASED
     Dosage: 134 MG, UNK
  12. CHANTIX [Suspect]
     Dosage: 1 MG, 2X/DAY
     Route: 048
     Dates: start: 20110101, end: 20111201
  13. GABAPENTIN [Concomitant]
     Dosage: 600 MG, 1X/DAY
  14. VITAMIN D [Concomitant]
     Dosage: 50000 IU, WEEKLY
  15. FENTANYL [Concomitant]
     Dosage: 50 UG,ONCE IN 3 DAYS

REACTIONS (3)
  - DYSURIA [None]
  - HYPERSOMNIA [None]
  - LYMPHOMA [None]
